FAERS Safety Report 21511289 (Version 1)
Quarter: 2022Q4

REPORT INFORMATION
  Report Type: Spontaneous
  Country: US (occurrence: US)
  Receive Date: 20221027
  Receipt Date: 20221027
  Transmission Date: 20230113
  Serious: No
  Sender: FDA-Public Use
  Company Number: US-AMGEN-USASP2022180703

PATIENT
  Sex: Female

DRUGS (6)
  1. KANJINTI [Suspect]
     Active Substance: TRASTUZUMAB-ANNS
     Indication: HER2 positive breast cancer
     Dosage: UNK
     Route: 065
     Dates: start: 202204
  2. NEULASTA [Suspect]
     Active Substance: PEGFILGRASTIM
     Indication: Product used for unknown indication
     Route: 065
  3. HERCEPTIN [Concomitant]
     Active Substance: TRASTUZUMAB
  4. PERJETA [Concomitant]
     Active Substance: PERTUZUMAB
  5. ZOMETA [Concomitant]
     Active Substance: ZOLEDRONIC ACID
  6. EXTAVIA [Concomitant]
     Active Substance: INTERFERON BETA-1B

REACTIONS (7)
  - Dehydration [Unknown]
  - Tumour marker increased [Unknown]
  - Skin odour abnormal [Unknown]
  - Feeling abnormal [Unknown]
  - Off label use [Unknown]
  - Weight decreased [Unknown]
  - Diarrhoea [Unknown]

NARRATIVE: CASE EVENT DATE: 20220101
